FAERS Safety Report 4498422-6 (Version None)
Quarter: 2004Q4

REPORT INFORMATION
  Report Type: 
  Country: None (occurrence: None)
  Receive Date: 20041105
  Receipt Date: 20041026
  Transmission Date: 20050328
  Serious: Yes (Hospitalization)
  Sender: FDA-Public Use
  Company Number: 2004084161

PATIENT
  Age: 28 Year
  Sex: Male

DRUGS (3)
  1. SULPERAZON (CEFOPERAZONE, SULBACTAM) [Suspect]
     Indication: ILL-DEFINED DISORDER
     Dosage: 2 GRAM, INTRAVENOUS
     Route: 042
  2. TEICOPLANIN (TEICOPLANIN) [Suspect]
     Indication: ILL-DEFINED DISORDER
     Dosage: 400 MG, INTRAVENOUS
     Route: 042
  3. VEEN D (CALCIUM CHLORIDE DIHYDRATE, GLUCOSE, POTASSIUM CHLORIDE, SODIU [Concomitant]

REACTIONS (2)
  - LYMPHOCYTE STIMULATION TEST POSITIVE [None]
  - WHITE BLOOD CELL COUNT DECREASED [None]
